FAERS Safety Report 12088420 (Version 3)
Quarter: 2016Q1

REPORT INFORMATION
  Report Type: Spontaneous
  Country: GH (occurrence: GH)
  Receive Date: 20160218
  Receipt Date: 20160310
  Transmission Date: 20160526
  Serious: Yes (Other)
  Sender: FDA-Public Use
  Company Number: GH-ROCHE-1712065

PATIENT
  Age: 37 Year
  Sex: Female

DRUGS (2)
  1. XELODA [Suspect]
     Active Substance: CAPECITABINE
     Indication: BREAST CANCER METASTATIC
     Dosage: 2000MG BID, THEN 1500MG BID
     Route: 065
  2. HERCEPTIN [Suspect]
     Active Substance: TRASTUZUMAB
     Indication: BREAST CANCER METASTATIC
     Route: 042

REACTIONS (4)
  - Chest pain [Recovered/Resolved]
  - Palpitations [Recovered/Resolved]
  - Arteriospasm coronary [Recovered/Resolved]
  - Fatigue [Recovered/Resolved]
